FAERS Safety Report 18773738 (Version 1)
Quarter: 2021Q1

REPORT INFORMATION
  Report Type: Spontaneous
  Country: US (occurrence: US)
  Receive Date: 20210121
  Receipt Date: 20210121
  Transmission Date: 20210419
  Serious: Yes (Hospitalization)
  Sender: FDA-Public Use
  Company Number: None

PATIENT
  Age: 52 Year
  Sex: Male
  Weight: 108 kg

DRUGS (1)
  1. TRAZODONE (TRAZODONE HCL 50MG TAB) [Suspect]
     Active Substance: TRAZODONE HYDROCHLORIDE
     Indication: INSOMNIA
     Dosage: OTHER DOSE:1?2 TABS;OTHER FREQUENCY:PRN;?
     Route: 048
     Dates: start: 20111213, end: 20200530

REACTIONS (1)
  - Priapism [None]

NARRATIVE: CASE EVENT DATE: 20200530
